FAERS Safety Report 5018875-4 (Version None)
Quarter: 2006Q2

REPORT INFORMATION
  Report Type: 
  Country: None (occurrence: None)
  Receive Date: 20060530
  Receipt Date: 20050726
  Transmission Date: 20061013
  Serious: Yes (Hospitalization, Other)
  Sender: FDA-Public Use
  Company Number: 2005107014

PATIENT
  Sex: Female

DRUGS (2)
  1. LYRICA [Suspect]
     Indication: TENSION HEADACHE
     Dosage: ORAL
     Route: 048
     Dates: start: 20041001, end: 20050601
  2. FLUPIRTINE (FLUPIRTINE) [Suspect]
     Indication: TENSION HEADACHE
     Dates: end: 20050601

REACTIONS (2)
  - HEPATIC NECROSIS [None]
  - HEPATITIS TOXIC [None]
